FAERS Safety Report 9637724 (Version 1)
Quarter: 2013Q4

REPORT INFORMATION
  Report Type: Spontaneous
  Country: FR (occurrence: FR)
  Receive Date: 20131022
  Receipt Date: 20131022
  Transmission Date: 20140711
  Serious: Yes (Hospitalization)
  Sender: FDA-Public Use
  Company Number: FR-ASTRAZENECA-2013SE76868

PATIENT
  Age: 541 Month
  Sex: Male

DRUGS (9)
  1. XEROQUEL [Suspect]
     Indication: SCHIZOPHRENIA
     Route: 048
  2. HALDOL DECANOAS [Suspect]
     Indication: SCHIZOPHRENIA
     Route: 030
  3. ANDROCUR [Suspect]
     Indication: ANTIANDROGEN THERAPY
     Route: 048
     Dates: start: 2010
  4. SUBUTEX [Suspect]
     Route: 045
  5. AOTAL [Concomitant]
     Indication: ALCOHOL USE
     Route: 048
  6. VALIUM ROCHE [Concomitant]
     Indication: SCHIZOPHRENIA
     Route: 048
  7. HAVLANE [Concomitant]
     Indication: SCHIZOPHRENIA
     Route: 048
  8. VITAMINE B1 [Concomitant]
     Indication: ALCOHOL USE
     Route: 048
  9. VITAMINE B6 [Concomitant]
     Indication: ALCOHOL USE
     Route: 048

REACTIONS (2)
  - Pulmonary embolism [Recovered/Resolved]
  - Deep vein thrombosis [Recovered/Resolved]
